FAERS Safety Report 10075344 (Version 1)
Quarter: 2014Q2

REPORT INFORMATION
  Report Type: Spontaneous
  Country: US (occurrence: US)
  Receive Date: 20140414
  Receipt Date: 20140414
  Transmission Date: 20141212
  Serious: No
  Sender: FDA-Public Use
  Company Number: US-BIOGENIDEC-2014BI032207

PATIENT
  Age: 54 Year
  Sex: Female
  Weight: 70 kg

DRUGS (9)
  1. TECFIDERA [Suspect]
     Indication: MULTIPLE SCLEROSIS
     Route: 048
     Dates: start: 201403
  2. AMPYRA [Concomitant]
  3. DETROL LA [Concomitant]
  4. NEURONTIN [Concomitant]
  5. MVI [Concomitant]
  6. OCUVITE [Concomitant]
  7. VITAMIN B12 [Concomitant]
  8. VITAMIN E [Concomitant]
  9. VITAMIN D3 [Concomitant]

REACTIONS (1)
  - Gait disturbance [Unknown]
